FAERS Safety Report 11846863 (Version 1)
Quarter: 2015Q4

REPORT INFORMATION
  Report Type: Spontaneous
  Country: US (occurrence: US)
  Receive Date: 20151217
  Receipt Date: 20151217
  Transmission Date: 20160305
  Serious: Yes (Other)
  Sender: FDA-Public Use
  Company Number: US-ROCHE-1475566

PATIENT
  Age: 59 Year
  Sex: Male
  Weight: 68.1 kg

DRUGS (5)
  1. TYLENOL [Concomitant]
     Active Substance: ACETAMINOPHEN
     Indication: PYREXIA
     Dosage: 2 TYLENOL^S EVERY 4-6 HOURS
     Route: 048
     Dates: start: 20141011
  2. IBUPROFEN. [Concomitant]
     Active Substance: IBUPROFEN
     Indication: PYREXIA
     Dosage: 2 IN BETWEEN DOSE OF ADVIL
     Route: 065
     Dates: start: 201410, end: 20141012
  3. BENADRYL [Concomitant]
     Active Substance: DIPHENHYDRAMINE HYDROCHLORIDE
     Indication: ERYTHEMA
     Dosage: 2 IN THE AFTERNOON AND AT NIGHT
     Route: 065
     Dates: start: 20141013, end: 20141013
  4. ADVIL [Concomitant]
     Active Substance: IBUPROFEN
     Indication: PYREXIA
     Dosage: 2-3 IN EVERY 6 HOURS
     Route: 048
     Dates: start: 20141012
  5. TAMIFLU [Suspect]
     Active Substance: OSELTAMIVIR PHOSPHATE
     Indication: INFLUENZA
     Dosage: 1 PILL TAKEN IN THE AFTERNOON
     Route: 048
     Dates: start: 20141012, end: 20141013

REACTIONS (7)
  - Vomiting [Recovered/Resolved]
  - Feeling hot [Not Recovered/Not Resolved]
  - Somnolence [Unknown]
  - Pruritus [Not Recovered/Not Resolved]
  - Rash [Recovering/Resolving]
  - Rash macular [Not Recovered/Not Resolved]
  - Urticaria [Not Recovered/Not Resolved]

NARRATIVE: CASE EVENT DATE: 20141012
